FAERS Safety Report 9527472 (Version 4)
Quarter: 2014Q1

REPORT INFORMATION
  Report Type: Spontaneous
  Country: GB (occurrence: GB)
  Receive Date: 20130917
  Receipt Date: 20140129
  Transmission Date: 20141002
  Serious: Yes (Hospitalization, Other)
  Sender: FDA-Public Use
  Company Number: GB-ROCHE-1269929

PATIENT
  Age: 58 Year
  Sex: Male

DRUGS (15)
  1. PEGASYS [Suspect]
     Indication: HEPATITIS C
     Route: 058
     Dates: start: 20130503, end: 20130823
  2. PEGASYS [Suspect]
     Indication: ANTIVIRAL TREATMENT
  3. COPEGUS [Suspect]
     Indication: HEPATITIS C
     Route: 048
     Dates: start: 20130503, end: 20130605
  4. COPEGUS [Suspect]
     Route: 048
     Dates: start: 20130605, end: 20130610
  5. COPEGUS [Suspect]
     Route: 048
     Dates: start: 20130610, end: 20130617
  6. COPEGUS [Suspect]
     Route: 048
     Dates: start: 20130617, end: 20130625
  7. COPEGUS [Suspect]
     Route: 048
     Dates: start: 20130719, end: 20130830
  8. INCIVO [Suspect]
     Indication: HEPATITIS C
     Route: 048
     Dates: start: 20130531, end: 20130805
  9. TRAMADOL [Suspect]
     Indication: PAIN
     Route: 048
     Dates: start: 20130805, end: 20130827
  10. TRAMADOL [Suspect]
     Indication: TOOTH ABSCESS
  11. PEGINTERFERON ALFA-2B [Suspect]
     Indication: HEPATITIS C
     Route: 048
     Dates: start: 20130419, end: 20130827
  12. FLUOXETINE [Concomitant]
     Indication: DEPRESSION
     Route: 048
     Dates: start: 20130417
  13. FUROSEMIDE [Concomitant]
     Indication: ASCITES
     Route: 048
     Dates: start: 20120102
  14. PROPANOLOL [Concomitant]
     Indication: ASCITES
     Route: 048
     Dates: start: 20120102
  15. PARACETAMOL [Concomitant]
     Indication: ANALGESIC THERAPY
     Route: 048

REACTIONS (9)
  - Hallucination [Recovered/Resolved]
  - Anaemia [Recovered/Resolved]
  - Oedema peripheral [Unknown]
  - Memory impairment [Unknown]
  - Malnutrition [Unknown]
  - Nausea [Unknown]
  - Thrombocytopenia [Recovered/Resolved]
  - Hypokalaemia [Unknown]
  - Psychotic disorder [Recovered/Resolved]
